FAERS Safety Report 11317976 (Version 1)
Quarter: 2015Q3

REPORT INFORMATION
  Report Type: Spontaneous
  Country: US (occurrence: US)
  Receive Date: 20150728
  Receipt Date: 20150728
  Transmission Date: 20151125
  Serious: Yes (Other)
  Sender: FDA-Public Use
  Company Number: US-APOTEX-2015AP007127

PATIENT
  Sex: Female

DRUGS (2)
  1. DONEPEZIL HYDROCHLORIDE TABLETS USP [Suspect]
     Active Substance: DONEPEZIL HYDROCHLORIDE
     Indication: SARCOIDOSIS
     Dosage: LOW-DOSE
     Route: 065
  2. RISPERIDONE. [Suspect]
     Active Substance: RISPERIDONE
     Indication: SARCOIDOSIS
     Dosage: LOW-DOSE
     Route: 065

REACTIONS (1)
  - Parkinsonism [Recovering/Resolving]
